FAERS Safety Report 6292464-6 (Version None)
Quarter: 2009Q3

REPORT INFORMATION
  Report Type: 
  Country: None (occurrence: None)
  Receive Date: 20090731
  Receipt Date: 20090720
  Transmission Date: 20100115
  Serious: Yes (Other)
  Sender: FDA-Public Use
  Company Number: FI-PFIZER INC-2009220505

PATIENT
  Age: 63 Year

DRUGS (3)
  1. XALCOM [Suspect]
     Indication: GLAUCOMA
     Dosage: UNK
     Route: 047
     Dates: start: 20080101
  2. XALATAN [Suspect]
     Indication: GLAUCOMA
     Dosage: UNK
     Route: 047
     Dates: start: 19970101, end: 20080101
  3. BLOCANOL EYE DROPS [Concomitant]
     Indication: GLAUCOMA
     Dosage: UNK
     Route: 047
     Dates: start: 20090101

REACTIONS (4)
  - EYELASH THICKENING [None]
  - GROWTH OF EYELASHES [None]
  - MADAROSIS [None]
  - TRABECULECTOMY [None]
